FAERS Safety Report 10216597 (Version 4)
Quarter: 2015Q1

REPORT INFORMATION
  Report Type: Spontaneous
  Country: US (occurrence: US)
  Receive Date: 20140604
  Receipt Date: 20150116
  Transmission Date: 20150720
  Serious: Yes (Hospitalization, Other)
  Sender: FDA-Public Use
  Company Number: US-BAYER-2014-082174

PATIENT
  Age: 35 Year
  Sex: Female
  Weight: 63.39 kg

DRUGS (18)
  1. MEDROL [METHYLPREDNISOLONE ACETATE] [Concomitant]
  2. BUTORPHANOL [Concomitant]
     Active Substance: BUTORPHANOL
  3. LIDODERM [Concomitant]
     Active Substance: LIDOCAINE
     Dosage: 5 %, UNK
     Route: 061
  4. FLAGYL [Concomitant]
     Active Substance: METRONIDAZOLE\METRONIDAZOLE HYDROCHLORIDE
  5. MEDROXYPROGESTERONE [Concomitant]
     Active Substance: MEDROXYPROGESTERONE
  6. DEXAMETHASONE. [Concomitant]
     Active Substance: DEXAMETHASONE
     Indication: PRURITUS
  7. MIRENA [Suspect]
     Active Substance: LEVONORGESTREL
     Indication: CONTRACEPTION
     Dosage: 20 MCG/24HR, CONT
     Route: 015
     Dates: start: 20120823, end: 20130605
  8. NAPROXEN. [Concomitant]
     Active Substance: NAPROXEN
     Dosage: 500 MG, BID,PRN
     Route: 048
  9. MIRENA [Suspect]
     Active Substance: LEVONORGESTREL
     Indication: CONTRACEPTION
     Dosage: 20 MCG/24HR, CONT
     Route: 015
     Dates: start: 20070727, end: 20120823
  10. ACYCLOVIR [ACICLOVIR SODIUM] [Concomitant]
     Dosage: 800 MG, UNK
  11. TEGRETOL [Concomitant]
     Active Substance: CARBAMAZEPINE
  12. PHENERGAN [Concomitant]
     Active Substance: PROMETHAZINE HYDROCHLORIDE
  13. PERCOCET [Concomitant]
     Active Substance: ACETAMINOPHEN\OXYCODONE HYDROCHLORIDE
  14. PREDNISONE. [Concomitant]
     Active Substance: PREDNISONE
     Indication: HERPES ZOSTER
     Dosage: 20 MG, ONCE
     Route: 048
  15. NALBUPHINE [Concomitant]
     Active Substance: NALBUPHINE
     Indication: PAIN
     Dosage: 1 ML, UNK
  16. LORTAB [Concomitant]
     Active Substance: ACETAMINOPHEN\HYDROCODONE BITARTRATE
     Dosage: UNK UNK, PRN
  17. ANAPROX [Concomitant]
     Active Substance: NAPROXEN SODIUM
  18. ZOVIRAX [Concomitant]
     Active Substance: ACYCLOVIR

REACTIONS (9)
  - Embedded device [None]
  - Uterine haemorrhage [None]
  - Device misuse [None]
  - Pain [None]
  - Injury [None]
  - Emotional distress [None]
  - Device issue [None]
  - Infertility female [None]
  - Pelvic pain [None]

NARRATIVE: CASE EVENT DATE: 201210
